FAERS Safety Report 7766142-8 (Version None)
Quarter: 2011Q3

REPORT INFORMATION
  Report Type: 
  Country: None (occurrence: None)
  Receive Date: 20110921
  Receipt Date: 20110915
  Transmission Date: 20111222
  Serious: Yes (Life-Threatening, Hospitalization, Other)
  Sender: FDA-Public Use
  Company Number: DE-MERCK-1107DEU00084

PATIENT
  Age: 71 Year
  Sex: Male

DRUGS (10)
  1. TAMSULOSIN HYDROCHLORIDE [Concomitant]
     Route: 065
  2. CLOPIDOGREL [Concomitant]
     Indication: CORONARY ARTERY DISEASE
     Route: 048
     Dates: start: 20101115
  3. BISOPROLOL [Concomitant]
     Route: 065
  4. ZOCOR [Suspect]
     Indication: HYPERCHOLESTEROLAEMIA
     Route: 048
     Dates: start: 20101115, end: 20101213
  5. RAMIPRIL [Concomitant]
     Route: 065
  6. AMLODIPINE [Concomitant]
     Route: 065
  7. ASPIRIN [Concomitant]
     Indication: CORONARY ARTERY DISEASE
     Route: 048
     Dates: start: 20101115
  8. CLARITHROMYCIN [Concomitant]
     Indication: PNEUMONIA CHLAMYDIAL
     Route: 048
     Dates: start: 20101115, end: 20101213
  9. TORSEMIDE [Concomitant]
     Route: 065
  10. ZOCOR [Suspect]
     Indication: CORONARY ARTERY DISEASE
     Route: 048
     Dates: start: 20101115, end: 20101213

REACTIONS (4)
  - RHABDOMYOLYSIS [None]
  - QUADRIPARESIS [None]
  - CORONARY ARTERY DISEASE [None]
  - PARAPARESIS [None]
